FAERS Safety Report 13695466 (Version 2)
Quarter: 2017Q3

REPORT INFORMATION
  Report Type: Spontaneous
  Country: US (occurrence: US)
  Receive Date: 20170627
  Receipt Date: 20170710
  Transmission Date: 20171127
  Serious: Yes (Other)
  Sender: FDA-Public Use
  Company Number: US-JAZZ-2017-US-007625

PATIENT
  Sex: Female

DRUGS (32)
  1. ADDERALL [Suspect]
     Active Substance: AMPHETAMINE ASPARTATE\AMPHETAMINE SULFATE\DEXTROAMPHETAMINE SACCHARATE\DEXTROAMPHETAMINE SULFATE
     Dosage: 5 MG TABLET
     Dates: start: 20151113, end: 201612
  2. OMEPRAZOLE. [Concomitant]
     Active Substance: OMEPRAZOLE
  3. AMITRIPTYLINE HCL [Concomitant]
     Active Substance: AMITRIPTYLINE
  4. ALLEGRA ALLERGY [Concomitant]
     Active Substance: FEXOFENADINE HYDROCHLORIDE
  5. SUMATRIPTAN SUCCINATE. [Concomitant]
     Active Substance: SUMATRIPTAN SUCCINATE
  6. LORAZEPAM. [Concomitant]
     Active Substance: LORAZEPAM
  7. XYREM [Suspect]
     Active Substance: SODIUM OXYBATE
     Indication: NARCOLEPSY
     Dosage: 2.25G, BID
     Route: 048
     Dates: start: 201402, end: 201402
  8. PROCARDIA [Concomitant]
     Active Substance: NIFEDIPINE
  9. NASONEX [Concomitant]
     Active Substance: MOMETASONE FUROATE
  10. PATANOL [Concomitant]
     Active Substance: OLOPATADINE HYDROCHLORIDE
  11. BOTOX [Concomitant]
     Active Substance: ONABOTULINUMTOXINA
  12. POTASSIUM CHLORIDE. [Concomitant]
     Active Substance: POTASSIUM CHLORIDE
  13. RESTORIL [Concomitant]
     Active Substance: TEMAZEPAM
  14. ADDERALL [Suspect]
     Active Substance: AMPHETAMINE ASPARTATE\AMPHETAMINE SULFATE\DEXTROAMPHETAMINE SACCHARATE\DEXTROAMPHETAMINE SULFATE
     Indication: PRODUCT USED FOR UNKNOWN INDICATION
     Dosage: 10 MG CAPSULE
     Dates: start: 20150916, end: 20150918
  15. PRENATAL                           /00231801/ [Concomitant]
     Active Substance: VITAMINS
  16. MIRENA [Concomitant]
     Active Substance: LEVONORGESTREL
  17. BIOTIN [Concomitant]
     Active Substance: BIOTIN
  18. IRON [Concomitant]
     Active Substance: IRON
  19. XYREM [Suspect]
     Active Substance: SODIUM OXYBATE
     Dosage: 4.5 G, BID
     Route: 048
     Dates: start: 201403
  20. PROTRIPTYLINE HCL [Concomitant]
  21. TOPIRAMATE. [Concomitant]
     Active Substance: TOPIRAMATE
  22. XYREM [Suspect]
     Active Substance: SODIUM OXYBATE
     Dosage: DOSE ADJUSTMENT
     Route: 048
     Dates: start: 201402, end: 201403
  23. SERTRALINE HCL [Concomitant]
     Active Substance: SERTRALINE HYDROCHLORIDE
  24. IMITREX [Concomitant]
     Active Substance: SUMATRIPTAN SUCCINATE
  25. ESTAZOLAM. [Concomitant]
     Active Substance: ESTAZOLAM
  26. LAMICTAL [Concomitant]
     Active Substance: LAMOTRIGINE
  27. PROZAC [Concomitant]
     Active Substance: FLUOXETINE HYDROCHLORIDE
  28. EXCEDRIN MIGRAINE [Concomitant]
     Active Substance: ACETAMINOPHEN\ASPIRIN\CAFFEINE
  29. POTASSIUM CITRATE. [Concomitant]
     Active Substance: POTASSIUM CITRATE
  30. IBUPROFEN. [Concomitant]
     Active Substance: IBUPROFEN
  31. NUVIGIL [Concomitant]
     Active Substance: ARMODAFINIL
  32. RITALIN [Concomitant]
     Active Substance: METHYLPHENIDATE HYDROCHLORIDE

REACTIONS (5)
  - Drug tolerance [Unknown]
  - Chest pain [Unknown]
  - Lower limb fracture [Unknown]
  - Somnambulism [Unknown]
  - Hyperhidrosis [Unknown]
